FAERS Safety Report 6866393-0 (Version None)
Quarter: 2010Q3

REPORT INFORMATION
  Report Type: 
  Country: None (occurrence: None)
  Receive Date: 20100722
  Receipt Date: 20100715
  Transmission Date: 20110219
  Serious: Yes (Hospitalization, Other)
  Sender: FDA-Public Use
  Company Number: PHHO2008FR01218

PATIENT
  Sex: Female
  Weight: 48 kg

DRUGS (15)
  1. STI571/CGP57148B T35717+TAB [Suspect]
     Indication: ACUTE LYMPHOCYTIC LEUKAEMIA
     Dosage: 800MG DAILY
     Route: 048
     Dates: start: 20061111
  2. STI571/CGP57148B T35717+TAB [Suspect]
     Dosage: 300 MG, BID
     Route: 048
     Dates: start: 20070523, end: 20070525
  3. STI571/CGP57148B T35717+TAB [Suspect]
     Dosage: 300 MG, QD
     Route: 048
     Dates: start: 20070526, end: 20070604
  4. STI571/CGP57148B T35717+TAB [Suspect]
     Dosage: 400 MG, QD
     Route: 048
     Dates: start: 20070605
  5. STI571/CGP57148B T35717+TAB [Suspect]
     Dosage: 500 MG, QD
     Route: 048
  6. STI571/CGP57148B T35717+TAB [Suspect]
     Dosage: 400 MG, QD
     Route: 048
     Dates: end: 20070615
  7. STI571/CGP57148B T35717+TAB [Suspect]
     Dosage: UNK
     Dates: start: 20070616, end: 20070621
  8. STI571/CGP57148B T35717+TAB [Suspect]
     Dosage: 400 MG, QD
     Route: 048
     Dates: start: 20070622
  9. HYPER-CVAD [Suspect]
     Indication: ACUTE LYMPHOCYTIC LEUKAEMIA
  10. OMEPRAZOLE [Concomitant]
  11. LUTERAN [Concomitant]
     Indication: CONTRACEPTION
  12. METHOTREXATE [Concomitant]
     Indication: ACUTE LYMPHOCYTIC LEUKAEMIA
  13. CYTARABINE [Concomitant]
     Indication: ACUTE LYMPHOCYTIC LEUKAEMIA
  14. PURINETHOL [Concomitant]
     Indication: ACUTE LYMPHOCYTIC LEUKAEMIA
  15. CYCLOPHOSPHAMIDE [Concomitant]
     Indication: ACUTE LYMPHOCYTIC LEUKAEMIA

REACTIONS (17)
  - ASTHENIA [None]
  - COUGH [None]
  - DECREASED APPETITE [None]
  - GENERAL PHYSICAL HEALTH DETERIORATION [None]
  - HERPES ZOSTER [None]
  - HYPOKALAEMIA [None]
  - LASEGUE'S TEST POSITIVE [None]
  - LEUKOPENIA [None]
  - LYMPHOPENIA [None]
  - MUSCULOSKELETAL PAIN [None]
  - NEUTROPENIA [None]
  - NORMOCHROMIC NORMOCYTIC ANAEMIA [None]
  - OEDEMA [None]
  - PANCYTOPENIA [None]
  - THROMBOCYTOPENIA [None]
  - VOMITING [None]
  - WEIGHT DECREASED [None]
